FAERS Safety Report 6474978-9 (Version None)
Quarter: 2009Q4

REPORT INFORMATION
  Report Type: 
  Country: None (occurrence: None)
  Receive Date: 20091204
  Receipt Date: 20090706
  Transmission Date: 20100525
  Serious: Yes (Other)
  Sender: FDA-Public Use
  Company Number: US-ELI_LILLY_AND_COMPANY-US200903006697

PATIENT
  Sex: Female

DRUGS (10)
  1. HUMALOG [Suspect]
     Dosage: 8 U, EACH MORNING
     Dates: start: 20070220
  2. HUMALOG [Suspect]
     Dosage: 20 U, EACH EVENING
  3. LANTUS [Concomitant]
     Dosage: 8 U, UNK
     Dates: start: 20060101
  4. SYNTHROID [Concomitant]
     Dosage: 125 MG, DAILY (1/D)
     Route: 048
  5. DEPAKOTE [Concomitant]
     Dosage: 250 MG, AS NEEDED
     Route: 048
  6. HCT SANDOZ [Concomitant]
     Dosage: 25 MG, DAILY (1/D)
     Route: 048
  7. PLAVIX [Concomitant]
     Dosage: 75 MG, DAILY (1/D)
     Route: 048
  8. CLONIDINE [Concomitant]
     Dosage: 0.2 MG, DAILY (1/D)
     Route: 048
  9. VYTORIN [Concomitant]
  10. PREVACID [Concomitant]
     Dosage: 30 MG, DAILY (1/D)
     Route: 048

REACTIONS (11)
  - ASTHENIA [None]
  - BLOOD GLUCOSE DECREASED [None]
  - BLOOD GLUCOSE INCREASED [None]
  - CATARACT [None]
  - DIZZINESS [None]
  - FALL [None]
  - HEADACHE [None]
  - HYPOGLYCAEMIC SEIZURE [None]
  - HYPOGLYCAEMIC UNCONSCIOUSNESS [None]
  - NECK PAIN [None]
  - VISUAL ACUITY REDUCED [None]
